FAERS Safety Report 8697477 (Version 2)
Quarter: 2012Q4

REPORT INFORMATION
  Report Type: 
  Country: US (occurrence: US)
  Receive Date: 20120801
  Receipt Date: 20120829
  Transmission Date: 20130627
  Serious: Yes (Hospitalization, Disabling, Other)
  Sender: FDA-Public Use
  Company Number: US-ACTELION-A-US2012-69068

PATIENT
  Age: 64 Year
  Sex: Female

DRUGS (3)
  1. TRACLEER [Suspect]
     Indication: PULMONARY ARTERIAL HYPERTENSION
     Dosage: UNK
     Route: 048
  2. ASA [Concomitant]
  3. ALVESCO [Concomitant]

REACTIONS (7)
  - Renal failure [Unknown]
  - Eye oedema [Not Recovered/Not Resolved]
  - Eye haemorrhage [Not Recovered/Not Resolved]
  - Nausea [Unknown]
  - Vision blurred [Not Recovered/Not Resolved]
  - Nephrosclerosis [Unknown]
  - Dialysis [Unknown]
